FAERS Safety Report 4482582-7 (Version None)
Quarter: 2004Q4

REPORT INFORMATION
  Report Type: 
  Country: None (occurrence: None)
  Receive Date: 20041022
  Receipt Date: 20040127
  Transmission Date: 20050328
  Serious: Yes (Other)
  Sender: FDA-Public Use
  Company Number: BE-JNJFOC-20040200102

PATIENT
  Age: 83 Year
  Sex: Female

DRUGS (8)
  1. PROPULSID [Suspect]
     Route: 065
  2. DAKAR [Concomitant]
     Route: 049
  3. PLENDIL [Concomitant]
     Route: 049
  4. VENORUTON [Concomitant]
     Route: 049
  5. DUSPATALIN [Concomitant]
     Indication: COLITIS
     Route: 049
  6. IMPORTAL [Concomitant]
     Indication: CONSTIPATION
     Route: 049
  7. TRANSIPEG [Concomitant]
     Indication: CONSTIPATION
     Route: 049
  8. TEMESTA [Concomitant]
     Dosage: 2.5
     Route: 049

REACTIONS (2)
  - COLON CANCER [None]
  - IRON DEFICIENCY ANAEMIA [None]
